FAERS Safety Report 9054785 (Version 2)
Quarter: 2013Q2

REPORT INFORMATION
  Report Type: Report from Study
  Country: US (occurrence: US)
  Receive Date: 20130208
  Receipt Date: 20130423
  Transmission Date: 20140414
  Serious: Yes (Life-Threatening, Disabling)
  Sender: FDA-Public Use
  Company Number: PHEH2011US013292

PATIENT
  Age: 38 Year
  Sex: Female

DRUGS (6)
  1. GILENYA [Suspect]
     Indication: MULTIPLE SCLEROSIS
     Dosage: 0.5 MG, QD
     Route: 048
     Dates: start: 20111019, end: 20111129
  2. BACLOFEN [Concomitant]
     Indication: MUSCLE SPASTICITY
     Route: 037
     Dates: start: 2010
  3. TEGRETOL [Concomitant]
     Indication: MENTAL DISORDER
     Dosage: 100 MG AM AND 300 MG NOON, DAILY
     Route: 048
  4. PROZAC [Concomitant]
     Indication: MENTAL DISORDER
     Dosage: 80 MG, DAILY
     Route: 048
  5. MEDROXYPROGESTERONE [Concomitant]
     Dosage: EVERY 11-13 WEEKS
     Route: 030
  6. ZOCOR [Concomitant]
     Indication: BLOOD CHOLESTEROL ABNORMAL
     Dosage: DAILY20 MG, UNK
     Route: 048

REACTIONS (1)
  - Asthenia [Unknown]
